FAERS Safety Report 4914770-7 (Version None)
Quarter: 2006Q1

REPORT INFORMATION
  Report Type: 
  Country: None (occurrence: None)
  Receive Date: 20060113
  Receipt Date: 20050810
  Transmission Date: 20060701
  Serious: Yes (Other)
  Sender: FDA-Public Use
  Company Number: HQWYE930416AUG05

PATIENT
  Sex: Female

DRUGS (1)
  1. PREMPHASE 14/14 [Suspect]

REACTIONS (1)
  - OVARIAN CANCER [None]
